FAERS Safety Report 13858585 (Version 6)
Quarter: 2017Q4

REPORT INFORMATION
  Report Type: Report from Study
  Country: US (occurrence: US)
  Receive Date: 20170811
  Receipt Date: 20171022
  Transmission Date: 20180320
  Serious: Yes (Other)
  Sender: FDA-Public Use
  Company Number: US-BIOGEN-2017BI00444230

PATIENT
  Age: 54 Year
  Sex: Male

DRUGS (5)
  1. ZINBRYTA [Suspect]
     Active Substance: DACLIZUMAB
     Route: 058
     Dates: start: 20170628
  2. ZINBRYTA [Suspect]
     Active Substance: DACLIZUMAB
     Route: 058
     Dates: end: 20170705
  3. MYRBETRIQ [Concomitant]
     Active Substance: MIRABEGRON
     Indication: PRODUCT USED FOR UNKNOWN INDICATION
     Route: 065
  4. ZINBRYTA [Suspect]
     Active Substance: DACLIZUMAB
     Route: 058
     Dates: end: 20170728
  5. ZINBRYTA [Suspect]
     Active Substance: DACLIZUMAB
     Indication: MULTIPLE SCLEROSIS
     Route: 058
     Dates: start: 20170605

REACTIONS (22)
  - Burning sensation [Recovered/Resolved]
  - Fatigue [Not Recovered/Not Resolved]
  - Hepatic lesion [Recovered/Resolved]
  - Skin reaction [Unknown]
  - Muscle spasms [Recovered/Resolved]
  - Gait disturbance [Unknown]
  - Body temperature decreased [Unknown]
  - Pain in extremity [Recovered/Resolved]
  - Facial pain [Recovered/Resolved]
  - Colitis ulcerative [Recovered/Resolved]
  - Rhinalgia [Unknown]
  - Dysgeusia [Recovered/Resolved]
  - Injection site reaction [Unknown]
  - Hepatic steatosis [Recovered/Resolved]
  - Swelling [Not Recovered/Not Resolved]
  - Polyp [Unknown]
  - Diverticulitis [Not Recovered/Not Resolved]
  - Cystitis [Unknown]
  - Urinary tract infection [Not Recovered/Not Resolved]
  - Neck pain [Not Recovered/Not Resolved]
  - Pruritus [Not Recovered/Not Resolved]
  - Lymphadenopathy [Not Recovered/Not Resolved]

NARRATIVE: CASE EVENT DATE: 20170628
